FAERS Safety Report 15249504 (Version 1)
Quarter: 2018Q3

REPORT INFORMATION
  Report Type: Spontaneous
  Country: US (occurrence: US)
  Receive Date: 20180807
  Receipt Date: 20180807
  Transmission Date: 20181010
  Serious: No
  Sender: FDA-Public Use
  Company Number: US-PERRIGO-18US004572

PATIENT
  Age: 67 Year
  Sex: Female
  Weight: 46.71 kg

DRUGS (3)
  1. LORATADINE. [Suspect]
     Active Substance: LORATADINE
     Indication: RHINORRHOEA
  2. LORATADINE. [Suspect]
     Active Substance: LORATADINE
     Indication: HYPERSENSITIVITY
  3. LORATADINE. [Suspect]
     Active Substance: LORATADINE
     Indication: NASAL CONGESTION
     Dosage: 10 MG, SINGLE
     Route: 048
     Dates: start: 20180421, end: 20180421

REACTIONS (3)
  - Nausea [Recovered/Resolved]
  - Dizziness [Recovering/Resolving]
  - Off label use [Recovered/Resolved]

NARRATIVE: CASE EVENT DATE: 20180421
